FAERS Safety Report 6988141-6 (Version None)
Quarter: 2010Q3

REPORT INFORMATION
  Report Type: 
  Country: None (occurrence: None)
  Receive Date: 20100916
  Receipt Date: 20100908
  Transmission Date: 20110219
  Serious: Yes (Death, Hospitalization)
  Sender: FDA-Public Use
  Company Number: CO-ROCHE-725801

PATIENT
  Sex: Male

DRUGS (1)
  1. XELODA [Suspect]
     Indication: GASTRIC CANCER
     Dosage: FREQUENCY:QD, ROUTE: PO (PER ORAL)
     Route: 048
     Dates: start: 20100406, end: 20100826

REACTIONS (1)
  - MALIGNANT NEOPLASM PROGRESSION [None]
